FAERS Safety Report 6653700-7 (Version None)
Quarter: 2010Q1

REPORT INFORMATION
  Report Type: 
  Country: None (occurrence: None)
  Receive Date: 20100326
  Receipt Date: 20090105
  Transmission Date: 20100710
  Serious: Yes (Death, Hospitalization)
  Sender: FDA-Public Use
  Company Number: RU-PFIZER INC-2009152457

PATIENT
  Age: 58 Year
  Sex: Female
  Weight: 56.5 kg

DRUGS (8)
  1. IRINOTECAN HCL [Suspect]
     Indication: COLORECTAL CANCER
     Dosage: 270 MG, EVERY 2 WEEKS
     Route: 042
     Dates: start: 20080512
  2. BLINDED *NO SUBJECT DRUG [Suspect]
     Indication: COLORECTAL CANCER
     Dosage: 37.5 MG, 1X/DAY
     Route: 048
     Dates: start: 20080512
  3. BLINDED *PLACEBO [Suspect]
     Indication: COLORECTAL CANCER
     Dosage: 37.5 MG, 1X/DAY
     Route: 048
     Dates: start: 20080512
  4. BLINDED SUNITINIB MALATE [Suspect]
     Indication: COLORECTAL CANCER
     Dosage: 37.5 MG, 1X/DAY
     Route: 048
     Dates: start: 20080512
  5. *FLUOROURACIL [Suspect]
     Indication: COLORECTAL CANCER
     Dosage: 600 MG, EVERY 2 WEEKS
     Route: 040
     Dates: start: 20080512
  6. *FLUOROURACIL [Suspect]
     Dosage: 3200 MG, INFUSION, EVERY 2 WEEKS
     Route: 042
     Dates: start: 20080512
  7. *CALCIUM FOLINATE [Suspect]
     Indication: COLORECTAL CANCER
     Dosage: 600 MG, EVERY 2 WEEKS
     Dates: start: 20080512
  8. ONDANSETRON [Concomitant]
     Indication: VOMITING
     Dosage: 8 MG, EVERY 2 WEEKS
     Dates: start: 20080512

REACTIONS (1)
  - PERITONITIS [None]
